FAERS Safety Report 9701282 (Version 2)
Quarter: 2013Q4

REPORT INFORMATION
  Report Type: Spontaneous
  Country: US (occurrence: US)
  Receive Date: 20131121
  Receipt Date: 20131121
  Transmission Date: 20140711
  Serious: No
  Sender: FDA-Public Use
  Company Number: US-GILEAD-2008-0016086

PATIENT
  Age: 64 Year
  Sex: Female
  Weight: 95.25 kg

DRUGS (13)
  1. LETAIRIS [Suspect]
     Indication: PULMONARY ARTERIAL HYPERTENSION
     Route: 048
     Dates: start: 20080404
  2. CARDIZEM CD [Concomitant]
     Route: 048
  3. BENICAR [Concomitant]
     Route: 048
  4. LASIX [Concomitant]
     Route: 048
  5. HUMALOG [Concomitant]
     Route: 058
  6. LANTUS [Concomitant]
     Route: 058
  7. BENTYL [Concomitant]
     Route: 048
  8. LIPITOR [Concomitant]
     Route: 048
  9. WELCHOL [Concomitant]
     Route: 048
  10. NEXIUM [Concomitant]
     Route: 048
  11. PAXIL [Concomitant]
     Route: 048
  12. VITAMIN B12 [Concomitant]
     Route: 048
  13. IBUPROFEN [Concomitant]
     Route: 048

REACTIONS (1)
  - Pruritus [Unknown]
